FAERS Safety Report 8748545 (Version 2)
Quarter: 2012Q4

REPORT INFORMATION
  Report Type: 
  Country: IE (occurrence: IE)
  Receive Date: 20120827
  Receipt Date: 20120905
  Transmission Date: 20130627
  Serious: Yes (Other)
  Sender: FDA-Public Use
  Company Number: IE-ROCHE-1107746

PATIENT
  Age: 11 Year
  Sex: Male
  Weight: 34 kg

DRUGS (6)
  1. ROACTEMRA [Suspect]
     Indication: JUVENILE ARTHRITIS
     Route: 042
     Dates: start: 201103
  2. ROACTEMRA [Suspect]
     Route: 065
     Dates: start: 20120824
  3. INSULIN [Concomitant]
     Indication: DIABETES MELLITUS
  4. METHOTREXATE [Concomitant]
     Indication: JUVENILE ARTHRITIS
     Route: 048
     Dates: start: 2009
  5. FOLIC ACID [Concomitant]
     Route: 048
     Dates: start: 2009
  6. IBUPROFEN [Concomitant]
     Indication: JUVENILE ARTHRITIS
     Route: 065

REACTIONS (2)
  - Neutrophil count decreased [Recovered/Resolved]
  - Tonsillitis [Recovered/Resolved]
